FAERS Safety Report 19208752 (Version 2)
Quarter: 2021Q2

REPORT INFORMATION
  Report Type: Spontaneous
  Country: US (occurrence: US)
  Receive Date: 20210504
  Receipt Date: 20210630
  Transmission Date: 20210717
  Serious: Yes (Other)
  Sender: FDA-Public Use
  Company Number: US-AUROBINDO-AUR-APL-2021-017260

PATIENT
  Sex: Male

DRUGS (1)
  1. SEVELAMER CARBONATE 800 MG TABLETS [Suspect]
     Active Substance: SEVELAMER CARBONATE
     Indication: RENAL DISORDER
     Dosage: 3 DOSAGE FORM, DAILY (WITH MEAL)
     Route: 048

REACTIONS (3)
  - Wrong technique in product usage process [Unknown]
  - Pharyngeal injury [Unknown]
  - Product use complaint [Unknown]
